FAERS Safety Report 14007162 (Version 1)
Quarter: 2017Q3

REPORT INFORMATION
  Report Type: Spontaneous
  Country: US (occurrence: US)
  Receive Date: 20170924
  Receipt Date: 20170924
  Transmission Date: 20171128
  Serious: Yes (Disabling, Other)
  Sender: FDA-Public Use
  Company Number: None

PATIENT
  Age: 74 Year
  Sex: Female
  Weight: 73.35 kg

DRUGS (11)
  1. ASPRIN [Concomitant]
     Active Substance: ASPIRIN
  2. VITAMIN E [Concomitant]
     Active Substance: .ALPHA.-TOCOPHEROL
  3. REPATHA [Suspect]
     Active Substance: EVOLOCUMAB
     Indication: BLOOD CHOLESTEROL INCREASED
     Dosage: ?          QUANTITY:1 INJECTION(S);OTHER FREQUENCY:ONE EVERY 2 WEEKS;OTHER ROUTE:INJECTION?
     Dates: start: 20161124, end: 20170909
  4. MAGNESIUM [Concomitant]
     Active Substance: MAGNESIUM
  5. OMEPRAZOLE. [Concomitant]
     Active Substance: OMEPRAZOLE
  6. LOSARTAN. [Concomitant]
     Active Substance: LOSARTAN
  7. VENLAFAXINE ER [Concomitant]
     Active Substance: VENLAFAXINE HYDROCHLORIDE
  8. DILTIAZEM ER [Concomitant]
     Active Substance: DILTIAZEM
  9. NITROSTAT [Concomitant]
     Active Substance: NITROGLYCERIN
  10. POTASSIUM [Concomitant]
     Active Substance: POTASSIUM
  11. ZANAFLEX [Concomitant]
     Active Substance: TIZANIDINE HYDROCHLORIDE

REACTIONS (10)
  - Gait inability [None]
  - Nausea [None]
  - Headache [None]
  - Salivary hypersecretion [None]
  - Choking [None]
  - Insomnia [None]
  - Arthralgia [None]
  - Neuropathy peripheral [None]
  - Back pain [None]
  - Asthenia [None]
